FAERS Safety Report 9705047 (Version 1)
Quarter: 2013Q4

REPORT INFORMATION
  Report Type: Report from Study
  Country: US (occurrence: US)
  Receive Date: 20131122
  Receipt Date: 20131122
  Transmission Date: 20140711
  Serious: No
  Sender: FDA-Public Use
  Company Number: US-ABBVIE-13P-163-1135396-00

PATIENT
  Sex: Male
  Weight: 109.41 kg

DRUGS (1)
  1. ANDROGEL [Suspect]
     Indication: BLOOD TESTOSTERONE DECREASED
     Dosage: ONE PUMP PER DAY, 20.25 MILLIGRAMS DAILY
     Dates: start: 20130528

REACTIONS (1)
  - Drug ineffective [Not Recovered/Not Resolved]
